FAERS Safety Report 6866528-X (Version None)
Quarter: 2010Q2

REPORT INFORMATION
  Report Type: 
  Country: None (occurrence: None)
  Receive Date: 20100601
  Receipt Date: 20090605
  Transmission Date: 20101027
  Serious: Yes (Hospitalization, Other)
  Sender: FDA-Public Use
  Company Number: WAES 0906USA01177

PATIENT
  Age: 87 Year
  Sex: Female

DRUGS (3)
  1. COSOPT [Suspect]
     Indication: GLAUCOMA
     Dosage: 2 DRPS/DAILY/OPHT
     Route: 047
     Dates: start: 20070111, end: 20070314
  2. COSOPT [Suspect]
     Indication: GLAUCOMA
     Dosage: DAILY/OPHT
     Route: 047
     Dates: start: 20091001
  3. TIMOPTIC [Suspect]
     Indication: GLAUCOMA
     Dosage: 1 DRPS/DAILY/OPHT
     Route: 047
     Dates: start: 20070301, end: 20090804

REACTIONS (8)
  - ABNORMAL SENSATION IN EYE [None]
  - CEREBROVASCULAR ACCIDENT [None]
  - CHROMATOPSIA [None]
  - EYE IRRITATION [None]
  - HEADACHE [None]
  - LACRIMAL DISORDER [None]
  - PHOTOPSIA [None]
  - VISUAL IMPAIRMENT [None]
